FAERS Safety Report 14675815 (Version 1)
Quarter: 2018Q1

REPORT INFORMATION
  Report Type: Spontaneous
  Country: US (occurrence: US)
  Receive Date: 20180323
  Receipt Date: 20180323
  Transmission Date: 20180509
  Serious: Yes (Hospitalization, Other)
  Sender: FDA-Public Use
  Company Number: US-SA-2018SA084656

PATIENT
  Age: 63 Year
  Sex: Female

DRUGS (4)
  1. PLAVIX [Suspect]
     Active Substance: CLOPIDOGREL BISULFATE
     Route: 065
  2. CRESTOR [Suspect]
     Active Substance: ROSUVASTATIN CALCIUM
     Route: 065
  3. WARFARIN [Concomitant]
     Active Substance: WARFARIN
     Indication: PULMONARY HYPERTENSION
     Route: 065
     Dates: start: 20170227
  4. AMBRISENTAN [Suspect]
     Active Substance: AMBRISENTAN
     Route: 065
     Dates: start: 20080528

REACTIONS (9)
  - Dizziness [Unknown]
  - Unevaluable event [Unknown]
  - Pain [Unknown]
  - Coronary artery disease [Unknown]
  - Arthralgia [Unknown]
  - Product use issue [Unknown]
  - Memory impairment [Unknown]
  - Chest pain [Unknown]
  - Cardiac disorder [Unknown]
